FAERS Safety Report 19443650 (Version 2)
Quarter: 2021Q2

REPORT INFORMATION
  Report Type: Spontaneous
  Country: AU (occurrence: AU)
  Receive Date: 20210621
  Receipt Date: 20210624
  Transmission Date: 20210717
  Serious: Yes (Hospitalization)
  Sender: FDA-Public Use
  Company Number: AU-CELGENEUS-AUS-20210601604

PATIENT
  Age: 79 Year
  Sex: Male
  Weight: 90.6 kg

DRUGS (17)
  1. RAMIPRIL. [Concomitant]
     Active Substance: RAMIPRIL
     Indication: ATRIAL FIBRILLATION
     Dosage: 2.5 MILLIGRAM
     Route: 048
     Dates: start: 2017
  2. MAGNESIUM [Concomitant]
     Active Substance: MAGNESIUM
     Indication: ACUTE MYOCARDIAL INFARCTION
     Dosage: 1000 MILLIGRAM
     Route: 048
     Dates: start: 2017
  3. APIXABAN [Concomitant]
     Active Substance: APIXABAN
     Indication: ATRIAL FIBRILLATION
     Route: 065
     Dates: start: 2017, end: 20210510
  4. CEFALEXIN [Concomitant]
     Active Substance: CEPHALEXIN
     Indication: ANTIBIOTIC PROPHYLAXIS
     Dosage: 1000 MILLIGRAM
     Route: 048
     Dates: start: 20210510, end: 20210531
  5. AZACITIDINE. [Suspect]
     Active Substance: AZACITIDINE
     Indication: MYELODYSPLASTIC SYNDROME
     Route: 058
     Dates: start: 20210503
  6. VENETOCLAX. [Suspect]
     Active Substance: VENETOCLAX
     Indication: MYELODYSPLASTIC SYNDROME
     Route: 065
  7. FUROSEMIDE. [Concomitant]
     Active Substance: FUROSEMIDE
     Indication: ACUTE MYOCARDIAL INFARCTION
     Dosage: 20 MILLIGRAM
     Route: 048
     Dates: start: 2017
  8. POSACONAZOLE [Concomitant]
     Active Substance: POSACONAZOLE
     Indication: ANTIFUNGAL PROPHYLAXIS
     Dosage: 600 MILLIGRAM
     Route: 048
     Dates: start: 20210510
  9. VALACYCLOVIR [Concomitant]
     Active Substance: VALACYCLOVIR HYDROCHLORIDE
     Indication: ANTIVIRAL PROPHYLAXIS
     Dosage: 500 MILLIGRAM
     Route: 048
     Dates: start: 20210430
  10. NEBIVOLOL. [Concomitant]
     Active Substance: NEBIVOLOL
     Indication: ATRIAL FIBRILLATION
     Dosage: 5 MILLIGRAM
     Route: 048
     Dates: start: 2017
  11. ATORVASTATIN [Concomitant]
     Active Substance: ATORVASTATIN
     Indication: ACUTE MYOCARDIAL INFARCTION
     Dosage: 10 MILLIGRAM
     Route: 048
     Dates: start: 2009, end: 20210531
  12. TAMSULOSIN [Concomitant]
     Active Substance: TAMSULOSIN
     Indication: BENIGN PROSTATIC HYPERPLASIA
     Dosage: 400 MICROGRAM
     Route: 048
     Dates: start: 2017
  13. SULFASALAZINE. [Concomitant]
     Active Substance: SULFASALAZINE
     Indication: RHEUMATOID ARTHRITIS
     Dosage: 1 GRAM
     Route: 048
     Dates: start: 2018
  14. ESOMEPRAZOLE. [Concomitant]
     Active Substance: ESOMEPRAZOLE MAGNESIUM
     Indication: GASTROOESOPHAGEAL REFLUX DISEASE
     Dosage: 20 MILLIGRAM
     Route: 048
     Dates: start: 2013
  15. APIXABAN [Concomitant]
     Active Substance: APIXABAN
     Dosage: 5 MILLIGRAM
     Route: 048
     Dates: start: 20210510
  16. CHOLECALCIFEROL [Concomitant]
     Active Substance: CHOLECALCIFEROL
     Indication: BONE DISORDER
     Dosage: 15 MICROGRAM
     Route: 048
     Dates: start: 2013
  17. ALLOPURINOL. [Concomitant]
     Active Substance: ALLOPURINOL
     Indication: PRODUCT USED FOR UNKNOWN INDICATION
     Dosage: 300 MILLIGRAM
     Route: 065
     Dates: start: 20210528, end: 20210530

REACTIONS (2)
  - Febrile neutropenia [Recovered/Resolved]
  - Cavernous sinus thrombosis [Not Recovered/Not Resolved]

NARRATIVE: CASE EVENT DATE: 20210528
